FAERS Safety Report 5473042-5 (Version None)
Quarter: 2007Q3

REPORT INFORMATION
  Report Type: 
  Country: None (occurrence: None)
  Receive Date: 20070927
  Receipt Date: 20070914
  Transmission Date: 20080115
  Serious: Yes (Other)
  Sender: FDA-Public Use
  Company Number: 2007EU002027

PATIENT
  Age: 86 Year
  Sex: Female

DRUGS (3)
  1. VESICARE [Suspect]
     Indication: MICTURITION URGENCY
     Dosage: 5 MG, /D, ORAL
     Route: 048
     Dates: start: 20070604, end: 20070611
  2. TRIMETHOPRIM [Concomitant]
  3. WARFARIN SODIUM [Concomitant]

REACTIONS (2)
  - ONYCHOMADESIS [None]
  - URINARY TRACT DISORDER [None]
